FAERS Safety Report 6480576-3 (Version None)
Quarter: 2009Q4

REPORT INFORMATION
  Report Type: 
  Country: None (occurrence: None)
  Receive Date: 20091202
  Receipt Date: 20091117
  Transmission Date: 20100525
  Serious: Yes (Other)
  Sender: FDA-Public Use
  Company Number: 2009BM000317

PATIENT
  Age: 6 Year
  Sex: Female
  Weight: 23.7 kg

DRUGS (1)
  1. KUVAN [Suspect]
     Indication: PHENYLKETONURIA
     Dosage: 500 MG; QD; PO
     Route: 048
     Dates: start: 20091101, end: 20091116

REACTIONS (5)
  - ABDOMINAL DISCOMFORT [None]
  - COUGH [None]
  - ERYTHEMA [None]
  - HEADACHE [None]
  - HYPERSENSITIVITY [None]
